FAERS Safety Report 10997582 (Version 1)
Quarter: 2015Q2

REPORT INFORMATION
  Report Type: Report from Study
  Country: US (occurrence: US)
  Receive Date: 20150408
  Receipt Date: 20150408
  Transmission Date: 20150821
  Serious: Yes (Other)
  Sender: FDA-Public Use
  Company Number: US-PFIZER INC-2015115377

PATIENT
  Age: 15 Year
  Sex: Male

DRUGS (2)
  1. DILANTIN [Suspect]
     Active Substance: PHENYTOIN
     Dosage: FROM 0.1 TO 0.2 GM, 4X/DAY
  2. DILANTIN [Suspect]
     Active Substance: PHENYTOIN
     Indication: EPILEPSY
     Dosage: FROM 0.1 TO 0.2 GM, 3X/DAY

REACTIONS (1)
  - Irritability [Recovered/Resolved]
